FAERS Safety Report 6719802-1 (Version None)
Quarter: 2010Q2

REPORT INFORMATION
  Report Type: 
  Country: None (occurrence: None)
  Receive Date: 20100511
  Receipt Date: 20100428
  Transmission Date: 20101027
  Serious: Yes (Other)
  Sender: FDA-Public Use
  Company Number: PHHY2010US26431

PATIENT
  Sex: Female
  Weight: 68 kg

DRUGS (7)
  1. GLEEVEC [Suspect]
     Indication: CHRONIC MYELOID LEUKAEMIA
     Dosage: UNK
     Route: 048
     Dates: start: 20050101
  2. GLEEVEC [Suspect]
     Dosage: 400 MG, DAILY
     Route: 048
     Dates: start: 20090807
  3. GLEEVEC [Suspect]
     Dosage: 600 MG/DAY
  4. REQUIP [Concomitant]
     Indication: RESTLESS LEGS SYNDROME
     Route: 042
  5. LUNESTA [Concomitant]
     Indication: SLEEP DISORDER
     Route: 048
  6. ATENOLOL [Concomitant]
     Indication: HYPERTENSION
     Route: 048
  7. KLONOPIN [Concomitant]
     Indication: RESTLESS LEGS SYNDROME
     Route: 048

REACTIONS (4)
  - ANAEMIA [None]
  - NEOPLASM MALIGNANT [None]
  - SQUAMOUS CELL CARCINOMA [None]
  - UPPER RESPIRATORY TRACT INFECTION [None]
